FAERS Safety Report 4445235-7 (Version None)
Quarter: 2004Q3

REPORT INFORMATION
  Report Type: 
  Country: None (occurrence: None)
  Receive Date: 20040730
  Receipt Date: 20040706
  Transmission Date: 20050211
  Serious: No
  Sender: FDA-Public Use
  Company Number: PHEH2004US04811

PATIENT
  Age: 80 Year
  Sex: Female

DRUGS (1)
  1. GLEEVEC [Suspect]
     Indication: CHRONIC MYELOID LEUKAEMIA
     Dosage: 400 MG, BID
     Dates: start: 20030101

REACTIONS (6)
  - COUGH [None]
  - EYELID OEDEMA [None]
  - FATIGUE [None]
  - NAUSEA [None]
  - PERIORBITAL OEDEMA [None]
  - PLATELET COUNT INCREASED [None]
